FAERS Safety Report 15701495 (Version 1)
Quarter: 2018Q4

REPORT INFORMATION
  Report Type: Spontaneous
  Country: CN (occurrence: CN)
  Receive Date: 20181207
  Receipt Date: 20181207
  Transmission Date: 20190205
  Serious: Yes (Other)
  Sender: FDA-Public Use
  Company Number: CN-BAXTER-2018BAX029549

PATIENT
  Age: 41 Year
  Sex: Male
  Weight: 73 kg

DRUGS (3)
  1. NEUTRAL INSULIN [Suspect]
     Active Substance: INSULIN PORK\INSULIN PURIFIED PORK
     Indication: CHRONIC KIDNEY DISEASE
     Route: 041
     Dates: start: 20180922, end: 20180922
  2. GLUCOSE [Suspect]
     Active Substance: DEXTROSE
     Indication: CHRONIC KIDNEY DISEASE
     Route: 041
     Dates: start: 20180922, end: 20180922
  3. 10% GLUCOSE  INJECTION [Suspect]
     Active Substance: DEXTROSE
     Indication: CHRONIC KIDNEY DISEASE
     Route: 041
     Dates: start: 20180922, end: 20180922

REACTIONS (2)
  - Pruritus [Recovering/Resolving]
  - Urticaria [Recovering/Resolving]

NARRATIVE: CASE EVENT DATE: 20180922
